FAERS Safety Report 9357140 (Version 2)
Quarter: 2013Q3

REPORT INFORMATION
  Report Type: Spontaneous
  Country: US (occurrence: None)
  Receive Date: 20130617
  Receipt Date: 20130807
  Transmission Date: 20140515
  Serious: Yes (Hospitalization)
  Sender: FDA-Public Use
  Company Number: ACO_34660_2013

PATIENT
  Age: 58 Year
  Sex: Female
  Weight: 71.7 kg

DRUGS (7)
  1. AMPYRA (DALFAMPRIDINE) TABLET, 10MG [Suspect]
     Indication: GAIT DISTURBANCE
     Dosage: Q 12 HRS
     Route: 048
  2. AMPYRA (DALFAMPRIDINE) TABLET, 10MG [Suspect]
     Indication: MULTIPLE SCLEROSIS
     Dosage: Q 12 HRS
     Route: 048
  3. TYSABRI [Suspect]
     Indication: MULTIPLE SCLEROSIS
     Dosage: EVERY 4 WEEKS
     Route: 042
     Dates: start: 201204
  4. VESICARE (SOLIFENACIN SUCCINATE) TABLET [Concomitant]
  5. COLACE (DOCUSATE SODIUM) [Concomitant]
  6. VITAMIN D (ERGOCALCIFEROL) [Concomitant]
  7. MIRALAX [Concomitant]

REACTIONS (13)
  - Functional gastrointestinal disorder [None]
  - Hot flush [None]
  - Pain in extremity [None]
  - Hypoaesthesia [None]
  - Multiple sclerosis relapse [None]
  - Nasopharyngitis [None]
  - Paraesthesia [None]
  - Gait disturbance [None]
  - Depression [None]
  - Rash [None]
  - Post herpetic neuralgia [None]
  - Herpes zoster [None]
  - Tremor [None]
